FAERS Safety Report 9701244 (Version 1)
Quarter: 2013Q4

REPORT INFORMATION
  Report Type: Spontaneous
  Country: US (occurrence: US)
  Receive Date: 20131121
  Receipt Date: 20131121
  Transmission Date: 20140711
  Serious: Yes (Other)
  Sender: FDA-Public Use
  Company Number: US-GILEAD-2008-0016130

PATIENT
  Age: 73 Year
  Sex: Female

DRUGS (6)
  1. LETAIRIS [Suspect]
     Indication: PULMONARY ARTERIAL HYPERTENSION
     Route: 048
     Dates: start: 20071211
  2. PROZAC [Concomitant]
  3. ZEGERID [Concomitant]
  4. IRON [Concomitant]
  5. AMITIZA [Concomitant]
  6. NEURONTIN [Concomitant]

REACTIONS (1)
  - Local swelling [Not Recovered/Not Resolved]
